FAERS Safety Report 9247277 (Version 3)
Quarter: 2013Q2

REPORT INFORMATION
  Report Type: Report from Study
  Country: TW (occurrence: TW)
  Receive Date: 20130423
  Receipt Date: 20130517
  Transmission Date: 20140414
  Serious: Yes (Hospitalization)
  Sender: FDA-Public Use
  Company Number: TW-SHIRE-ALL1-2013-02466

PATIENT
  Age: 8 Year
  Sex: Male
  Weight: 16.3 kg

DRUGS (10)
  1. IDURSULFASE [Suspect]
     Indication: MUCOPOLYSACCHARIDOSIS II
     Dosage: 0.5 MG/KG, 1X/WEEK
     Dates: start: 20070208
  2. IDURSULFASE [Suspect]
     Dosage: 0.5 MG/KG, 1X/WEEK
     Route: 041
     Dates: start: 20110402
  3. IDURSULFASE [Suspect]
     Dosage: 18 MG, 1X/WEEK
     Route: 041
     Dates: start: 20100903
  4. IDURSULFASE [Suspect]
     Dosage: 12 MG, 1X/WEEK
     Route: 041
     Dates: start: 20090320
  5. IDURSULFASE [Suspect]
     Dosage: 8.1 MG, 1X/WEEK
     Route: 041
     Dates: start: 20070802
  6. CHLORPHENAMINE [Concomitant]
     Indication: PREMEDICATION
     Dosage: 2.5 MG, 1X/WEEK
     Route: 042
     Dates: start: 20090320
  7. AMOXICILLIN [Concomitant]
     Indication: ANTI-INFECTIVE THERAPY
     Dosage: 125 MG, 4X/DAY:QID
     Route: 048
     Dates: start: 20100128
  8. AUGMENTIN                          /00756801/ [Concomitant]
     Indication: RESPIRATORY DISORDER
     Dosage: 35 ML, 3X/DAY:TID
     Route: 048
     Dates: start: 20100124
  9. ROTEC [Concomitant]
     Indication: RESPIRATORY DISORDER
     Dosage: 0.5 DF, 3X/DAY:TID
     Route: 048
     Dates: start: 20100111
  10. ACETAMINOPHEN [Concomitant]
     Indication: PAIN
     Dosage: 120 MG, 4X/DAY:QID
     Route: 048
     Dates: start: 20090910

REACTIONS (1)
  - Abdominal pain [Recovered/Resolved]
